FAERS Safety Report 20111107 (Version 2)
Quarter: 2021Q4

REPORT INFORMATION
  Report Type: Spontaneous
  Country: US (occurrence: US)
  Receive Date: 20211125
  Receipt Date: 20211207
  Transmission Date: 20220303
  Serious: No
  Sender: FDA-Public Use
  Company Number: US-ELI_LILLY_AND_COMPANY-US202111010293

PATIENT
  Sex: Male

DRUGS (2)
  1. TRULICITY [Suspect]
     Active Substance: DULAGLUTIDE
     Indication: Diabetes mellitus
     Dosage: 0.75 MG, UNKNOWN
     Route: 065
     Dates: start: 20210601
  2. TRULICITY [Suspect]
     Active Substance: DULAGLUTIDE
     Dosage: 3.0 MG, UNKNOWN
     Route: 058
     Dates: start: 20210601

REACTIONS (4)
  - Blood glucose increased [Unknown]
  - Weight decreased [Unknown]
  - Decreased appetite [Not Recovered/Not Resolved]
  - Abdominal discomfort [Not Recovered/Not Resolved]
